FAERS Safety Report 16410386 (Version 1)
Quarter: 2019Q3

REPORT INFORMATION
  Report Type: Spontaneous
  Country: US (occurrence: US)
  Receive Date: 20190607
  Receipt Date: 20190607
  Transmission Date: 20191004
  Serious: Yes (Hospitalization)
  Sender: FDA-Public Use
  Company Number: None

PATIENT
  Sex: Female

DRUGS (12)
  1. SPIRONOLACTONE. [Concomitant]
     Active Substance: SPIRONOLACTONE
  2. VITAMIN B [Concomitant]
     Active Substance: VITAMIN B
  3. ROPINIROLE. [Concomitant]
     Active Substance: ROPINIROLE
  4. ELIQUIS [Concomitant]
     Active Substance: APIXABAN
  5. CARTIA XT [Concomitant]
     Active Substance: DILTIAZEM HYDROCHLORIDE
  6. FASLODEX [Concomitant]
     Active Substance: FULVESTRANT
  7. TOPROL XL [Concomitant]
     Active Substance: METOPROLOL SUCCINATE
  8. LEVOTHYROXINE. [Concomitant]
     Active Substance: LEVOTHYROXINE
  9. XGEVA [Concomitant]
     Active Substance: DENOSUMAB
  10. IBRANCE [Suspect]
     Active Substance: PALBOCICLIB
     Indication: BREAST CANCER
     Route: 048
     Dates: start: 20170613
  11. LASIX [Concomitant]
     Active Substance: FUROSEMIDE
  12. DORZOL/TIMOLOL SOLUTION [Concomitant]

REACTIONS (1)
  - Hospitalisation [None]
